FAERS Safety Report 10329243 (Version 1)
Quarter: 2014Q3

REPORT INFORMATION
  Report Type: Spontaneous
  Country: BR (occurrence: BR)
  Receive Date: 20140721
  Receipt Date: 20140721
  Transmission Date: 20150326
  Serious: Yes (Death, Hospitalization)
  Sender: FDA-Public Use
  Company Number: BR-ABBVIE-14P-020-1261557-00

PATIENT
  Age: 55 Year
  Sex: Female

DRUGS (1)
  1. HUMIRA [Suspect]
     Active Substance: ADALIMUMAB
     Indication: RHEUMATOID ARTHRITIS
     Dates: start: 2013

REACTIONS (4)
  - Dyspnoea [Not Recovered/Not Resolved]
  - Pneumonia [Fatal]
  - Dyspnoea exertional [Not Recovered/Not Resolved]
  - Sepsis [Fatal]
